FAERS Safety Report 23683623 (Version 1)
Quarter: 2024Q1

REPORT INFORMATION
  Report Type: Spontaneous
  Country: RU (occurrence: RU)
  Receive Date: 20240328
  Receipt Date: 20240328
  Transmission Date: 20240410
  Serious: Yes (Death, Hospitalization, Other)
  Sender: FDA-Public Use
  Company Number: RU-BIOVITRUM-2024-RU-004936

PATIENT
  Age: 40 Year
  Sex: Male

DRUGS (1)
  1. ANAKINRA [Suspect]
     Active Substance: ANAKINRA
     Indication: Gout
     Dosage: ONCE A DAY
     Route: 058

REACTIONS (4)
  - Pancreatitis [Unknown]
  - Pancreatitis necrotising [Unknown]
  - Peritonitis [Fatal]
  - Off label use [Recovered/Resolved]
